FAERS Safety Report 18264135 (Version 1)
Quarter: 2020Q3

REPORT INFORMATION
  Report Type: Spontaneous
  Country: US (occurrence: US)
  Receive Date: 20200914
  Receipt Date: 20200914
  Transmission Date: 20201103
  Serious: Yes (Life-Threatening, Hospitalization, Other)
  Sender: FDA-Public Use
  Company Number: US-SLATE RUN PHARMACEUTICALS-20US000272

PATIENT

DRUGS (10)
  1. OXYGEN. [Concomitant]
     Active Substance: OXYGEN
     Indication: OXYGEN THERAPY
     Route: 064
  2. HEPARIN [Concomitant]
     Active Substance: HEPARIN SODIUM
     Indication: MATERNAL EXPOSURE TIMING UNSPECIFIED
     Route: 064
  3. REMDESIVIR. [Concomitant]
     Active Substance: REMDESIVIR
     Indication: MATERNAL EXPOSURE TIMING UNSPECIFIED
     Route: 064
  4. HYDROXYCHLOROQUINE [Concomitant]
     Active Substance: HYDROXYCHLOROQUINE
     Indication: MATERNAL EXPOSURE TIMING UNSPECIFIED
     Route: 064
  5. ASCORBIC ACID. [Concomitant]
     Active Substance: ASCORBIC ACID
     Indication: MATERNAL EXPOSURE TIMING UNSPECIFIED
     Route: 064
  6. AZITHROMYCIN USP [Suspect]
     Active Substance: AZITHROMYCIN
     Indication: MATERNAL EXPOSURE TIMING UNSPECIFIED
     Route: 064
  7. METHYLPREDNISOLONE. [Concomitant]
     Active Substance: METHYLPREDNISOLONE
     Indication: MATERNAL EXPOSURE TIMING UNSPECIFIED
     Route: 064
  8. CEFTRIAXONE. [Concomitant]
     Active Substance: CEFTRIAXONE
     Indication: MATERNAL EXPOSURE TIMING UNSPECIFIED
     Route: 064
  9. TOCILIZUMAB. [Concomitant]
     Active Substance: TOCILIZUMAB
     Indication: MATERNAL EXPOSURE TIMING UNSPECIFIED
     Route: 064
  10. ENOXAPARIN [Concomitant]
     Active Substance: ENOXAPARIN
     Indication: MATERNAL EXPOSURE TIMING UNSPECIFIED
     Route: 064

REACTIONS (9)
  - Infantile apnoea [Recovering/Resolving]
  - Sepsis neonatal [Recovering/Resolving]
  - Poor feeding infant [Recovering/Resolving]
  - Apgar score low [Recovering/Resolving]
  - Neonatal respiratory distress syndrome [Recovering/Resolving]
  - Premature baby [Recovering/Resolving]
  - Hyperbilirubinaemia neonatal [Recovering/Resolving]
  - Foetal exposure during pregnancy [Unknown]
  - Temperature regulation disorder [Recovering/Resolving]
